FAERS Safety Report 6000692-X (Version None)
Quarter: 2008Q4

REPORT INFORMATION
  Report Type: 
  Country: None (occurrence: None)
  Receive Date: 20081211
  Receipt Date: 20080514
  Transmission Date: 20090506
  Serious: Yes (Other)
  Sender: FDA-Public Use
  Company Number: ENTC2008-0155

PATIENT
  Sex: Female

DRUGS (3)
  1. STALEVO 100 [Suspect]
     Indication: PARKINSON'S DISEASE
     Dosage: 400 MG, 4 IN 1 D, ORAL; 300 MG, 3 IN 1 D, ORAL
     Route: 048
     Dates: start: 20080401
  2. SELEGILINE HCL [Concomitant]
  3. OMEPRAZOLE [Concomitant]

REACTIONS (2)
  - AMNESIA [None]
  - BLEPHAROSPASM [None]
